FAERS Safety Report 23662669 (Version 1)
Quarter: 2024Q1

REPORT INFORMATION
  Report Type: Spontaneous
  Country: US (occurrence: US)
  Receive Date: 20240322
  Receipt Date: 20240322
  Transmission Date: 20240409
  Serious: Yes (Other)
  Sender: FDA-Public Use
  Company Number: US-SANDOZ-SDZ2024US028703

PATIENT
  Age: 68 Year
  Sex: Male

DRUGS (6)
  1. METHOTREXATE [Suspect]
     Active Substance: METHOTREXATE
     Indication: Conjunctivitis
     Dosage: UNK
     Route: 065
  2. METHOTREXATE [Suspect]
     Active Substance: METHOTREXATE
     Indication: Conjunctival scar
  3. MYCOPHENOLATE MOFETIL [Suspect]
     Active Substance: MYCOPHENOLATE MOFETIL
     Indication: Conjunctivitis
     Dosage: UNK
     Route: 065
  4. MYCOPHENOLATE MOFETIL [Suspect]
     Active Substance: MYCOPHENOLATE MOFETIL
     Indication: Conjunctival scar
  5. RITUXIMAB [Suspect]
     Active Substance: RITUXIMAB
     Indication: Conjunctivitis
     Dosage: 375 MG/M2, 8 WEEKLY INFUSIONS
     Route: 058
  6. RITUXIMAB [Suspect]
     Active Substance: RITUXIMAB
     Indication: Conjunctival scar
     Dosage: UNK, QMO
     Route: 065

REACTIONS (3)
  - Conjunctival scar [Recovering/Resolving]
  - Disease progression [Recovering/Resolving]
  - Drug ineffective for unapproved indication [Unknown]
